FAERS Safety Report 20618262 (Version 5)
Quarter: 2024Q4

REPORT INFORMATION
  Report Type: Spontaneous
  Country: CA (occurrence: CA)
  Receive Date: 20220321
  Receipt Date: 20241015
  Transmission Date: 20250115
  Serious: Yes (Hospitalization)
  Sender: ROCHE
  Company Number: CA-ROCHE-3045823

PATIENT
  Age: 46 Year
  Sex: Male

DRUGS (13)
  1. OCRELIZUMAB [Suspect]
     Active Substance: OCRELIZUMAB
     Indication: Relapsing-remitting multiple sclerosis
     Route: 042
  2. OCRELIZUMAB [Suspect]
     Active Substance: OCRELIZUMAB
     Route: 042
  3. COMIRNATY (TOZINAMERAN) [Suspect]
     Active Substance: TOZINAMERAN
     Indication: COVID-19 immunisation
     Dosage: COMIRNATY VIAL CONTAINS 6 DOSES OF 0.3 ML AFTER DILUTION? FREQUENCY TEXT:TOTAL
     Route: 065
  4. AMLODIPINE [Concomitant]
     Active Substance: AMLODIPINE BESYLATE
     Indication: Blood pressure measurement
     Route: 065
  5. MESALAMINE [Concomitant]
     Active Substance: MESALAMINE
  6. PREGABALIN [Concomitant]
     Active Substance: PREGABALIN
  7. TRAZODONE [Concomitant]
     Active Substance: TRAZODONE HYDROCHLORIDE
  8. ACETAMINOPHEN [Concomitant]
     Active Substance: ACETAMINOPHEN
  9. DEXTROMETHORPHAN HYDROBROMIDE [Concomitant]
     Active Substance: DEXTROMETHORPHAN HYDROBROMIDE
  10. DOXYLAMINE SUCCINATE [Concomitant]
     Active Substance: DOXYLAMINE SUCCINATE
  11. EPHEDRINE SULFATE [Concomitant]
     Active Substance: EPHEDRINE SULFATE
  12. ALCOHOL [Concomitant]
     Active Substance: ALCOHOL
  13. TYLENOL [Concomitant]
     Active Substance: ACETAMINOPHEN

REACTIONS (15)
  - Abdominal distension [Not Recovered/Not Resolved]
  - Asthenia [Not Recovered/Not Resolved]
  - Colitis ulcerative [Not Recovered/Not Resolved]
  - Fatigue [Not Recovered/Not Resolved]
  - Gait disturbance [Not Recovered/Not Resolved]
  - Infusion related reaction [Not Recovered/Not Resolved]
  - Large intestine infection [Not Recovered/Not Resolved]
  - Muscular weakness [Not Recovered/Not Resolved]
  - Pain in extremity [Not Recovered/Not Resolved]
  - Urticaria [Not Recovered/Not Resolved]
  - Feeling abnormal [Not Recovered/Not Resolved]
  - COVID-19 [Not Recovered/Not Resolved]
  - Drug ineffective [Unknown]
  - Fall [Unknown]
  - Blood pressure increased [Not Recovered/Not Resolved]
